FAERS Safety Report 23446855 (Version 2)
Quarter: 2024Q1

REPORT INFORMATION
  Report Type: Spontaneous
  Country: IT (occurrence: IT)
  Receive Date: 20240126
  Receipt Date: 20240129
  Transmission Date: 20240410
  Serious: Yes (Other)
  Sender: FDA-Public Use
  Company Number: IT-Accord-401231

PATIENT
  Age: 48 Year
  Sex: Female

DRUGS (2)
  1. EXEMESTANE [Suspect]
     Active Substance: EXEMESTANE
     Indication: Hormone receptor positive breast cancer
     Dosage: UNK
  2. TRIPTORELIN [Concomitant]
     Active Substance: TRIPTORELIN
     Indication: Hormone receptor positive breast cancer
     Dosage: UNK

REACTIONS (3)
  - Dupuytren^s contracture [Unknown]
  - Tenosynovitis [Unknown]
  - Tendon rupture [Unknown]
